FAERS Safety Report 5648218-4 (Version None)
Quarter: 2008Q1

REPORT INFORMATION
  Report Type: 
  Country: None (occurrence: None)
  Receive Date: 20080131
  Receipt Date: 20071109
  Transmission Date: 20080703
  Serious: No
  Sender: FDA-Public Use
  Company Number: US200708004663

PATIENT
  Age: 67 Year
  Sex: Male

DRUGS (4)
  1. BYETTA [Suspect]
     Dosage: 10 UG, SUBCUTANEOUS ; 5 UG, 2/D, SUBCUTANEOUS ;  10 UG, 2/D, SUBCUTANEOUS ; SUBCUTANEOUS
     Route: 058
     Dates: start: 20070701, end: 20070801
  2. BYETTA [Suspect]
     Dosage: 10 UG, SUBCUTANEOUS ; 5 UG, 2/D, SUBCUTANEOUS ;  10 UG, 2/D, SUBCUTANEOUS ; SUBCUTANEOUS
     Route: 058
     Dates: start: 20071109, end: 20071109
  3. BYETTA [Suspect]
     Dosage: 10 UG, SUBCUTANEOUS ; 5 UG, 2/D, SUBCUTANEOUS ;  10 UG, 2/D, SUBCUTANEOUS ; SUBCUTANEOUS
     Route: 058
     Dates: start: 20070801
  4. BYETTA [Suspect]

REACTIONS (6)
  - ACCIDENTAL OVERDOSE [None]
  - INCORRECT DOSE ADMINISTERED [None]
  - INJECTION SITE EXTRAVASATION [None]
  - NAUSEA [None]
  - STOMACH DISCOMFORT [None]
  - WEIGHT DECREASED [None]
